FAERS Safety Report 23030741 (Version 1)
Quarter: 2023Q4

REPORT INFORMATION
  Report Type: Spontaneous
  Country: IN (occurrence: IN)
  Receive Date: 20231005
  Receipt Date: 20231005
  Transmission Date: 20240110
  Serious: Yes (Death, Other)
  Sender: FDA-Public Use
  Company Number: IN-NOVITIUMPHARMA-2023INNVP01744

PATIENT
  Age: 51 Year
  Sex: Female

DRUGS (3)
  1. DEXAMETHASONE [Suspect]
     Active Substance: DEXAMETHASONE
     Indication: COVID-19 pneumonia
  2. DEXAMETHASONE [Suspect]
     Active Substance: DEXAMETHASONE
  3. REMDESIVIR [Concomitant]
     Active Substance: REMDESIVIR
     Indication: COVID-19 pneumonia

REACTIONS (2)
  - Cerebral aspergillosis [Fatal]
  - Off label use [Unknown]
